FAERS Safety Report 20674821 (Version 1)
Quarter: 2022Q2

REPORT INFORMATION
  Report Type: Spontaneous
  Country: US (occurrence: None)
  Receive Date: 20220404
  Receipt Date: 20220404
  Transmission Date: 20220721
  Serious: Yes (Hospitalization, Disabling)
  Sender: FDA-Public Use
  Company Number: None

PATIENT
  Age: 59 Year
  Sex: Female

DRUGS (1)
  1. HUMIRA [Suspect]
     Active Substance: ADALIMUMAB
     Indication: Rheumatoid arthritis
     Dosage: OTHER FREQUENCY : EVERY 2 WEEKS;?
     Route: 058
     Dates: start: 20201111, end: 20220331

REACTIONS (9)
  - Gastroenteritis viral [None]
  - Asthenia [None]
  - Bacteraemia [None]
  - Pain [None]
  - Gait disturbance [None]
  - Back pain [None]
  - Rash [None]
  - Nerve injury [None]
  - Pneumonia [None]

NARRATIVE: CASE EVENT DATE: 20220212
